FAERS Safety Report 24300235 (Version 1)
Quarter: 2024Q3

REPORT INFORMATION
  Report Type: Spontaneous
  Country: JP (occurrence: JP)
  Receive Date: 20240909
  Receipt Date: 20240909
  Transmission Date: 20241016
  Serious: Yes (Other)
  Sender: MERCK
  Company Number: JP-MSD-2405JPN000004J

PATIENT
  Sex: Female

DRUGS (1)
  1. KEYTRUDA [Suspect]
     Active Substance: PEMBROLIZUMAB
     Indication: Triple negative breast cancer
     Dosage: UNK
     Route: 041

REACTIONS (18)
  - Duodenal ulcer [Unknown]
  - Neuropathy peripheral [Unknown]
  - Febrile neutropenia [Unknown]
  - Pneumonia [Unknown]
  - Pneumonia [Unknown]
  - Immune-mediated adrenal insufficiency [Unknown]
  - Immune-mediated hepatitis [Unknown]
  - Immune-mediated hypothyroidism [Unknown]
  - Immune-mediated hyperthyroidism [Unknown]
  - Immune-mediated enterocolitis [Unknown]
  - Alanine aminotransferase increased [Unknown]
  - Aspartate aminotransferase increased [Unknown]
  - Neutrophil count decreased [Unknown]
  - Rash [Unknown]
  - Anaemia [Unknown]
  - Pyrexia [Unknown]
  - Immune-mediated dermatitis [Unknown]
  - Pyrexia [Unknown]
